FAERS Safety Report 6530253-5 (Version None)
Quarter: 2010Q1

REPORT INFORMATION
  Report Type: 
  Country: None (occurrence: None)
  Receive Date: 20100107
  Receipt Date: 20091228
  Transmission Date: 20100710
  Serious: Yes (Death, Other)
  Sender: FDA-Public Use
  Company Number: JP-PFIZER INC-2009310118

PATIENT
  Age: 38 Year
  Sex: Male
  Weight: 59.5 kg

DRUGS (10)
  1. SUNITINIB MALATE [Suspect]
     Indication: RENAL CELL CARCINOMA
     Dosage: 50 MG, 1X/DAY
     Route: 048
     Dates: start: 20090328, end: 20090424
  2. TAKEPRON [Concomitant]
     Route: 048
     Dates: start: 20090410, end: 20090428
  3. CODEINE PHOSPHATE [Concomitant]
     Route: 048
  4. RINDERON [Concomitant]
     Route: 048
     Dates: start: 20090331, end: 20090423
  5. MEDICON [Concomitant]
     Route: 048
     Dates: start: 20090406
  6. LAFUTIDINE [Concomitant]
     Route: 048
     Dates: end: 20090505
  7. NOVAMIN [Concomitant]
     Route: 048
     Dates: end: 20090505
  8. AVELOX [Concomitant]
     Route: 048
     Dates: start: 20090409, end: 20090416
  9. GASTER [Concomitant]
     Route: 048
     Dates: start: 20090419, end: 20090421
  10. HOKUNALIN [Concomitant]
     Route: 062
     Dates: start: 20090414

REACTIONS (3)
  - DISEASE PROGRESSION [None]
  - PLATELET COUNT DECREASED [None]
  - RENAL CELL CARCINOMA [None]
